FAERS Safety Report 10474115 (Version 3)
Quarter: 2014Q4

REPORT INFORMATION
  Report Type: Spontaneous
  Country: US (occurrence: US)
  Receive Date: 20140924
  Receipt Date: 20141212
  Transmission Date: 20150528
  Serious: Yes (Other)
  Sender: FDA-Public Use
  Company Number: US-ASTRAZENECA-2013SE71204

PATIENT
  Age: 54 Year
  Sex: Female
  Weight: 63.5 kg

DRUGS (27)
  1. SEROQUEL [Suspect]
     Active Substance: QUETIAPINE FUMARATE
     Indication: BIPOLAR DISORDER
     Route: 048
     Dates: start: 2005, end: 2013
  2. SEROQUEL [Suspect]
     Active Substance: QUETIAPINE FUMARATE
     Indication: BIPOLAR DISORDER
     Route: 048
     Dates: start: 2013, end: 201403
  3. DEPAKOTE [Concomitant]
     Active Substance: DIVALPROEX SODIUM
     Indication: EPILEPSY
     Route: 048
  4. TRILIPIX [Concomitant]
     Active Substance: FENOFIBRIC ACID
     Indication: BLOOD TRIGLYCERIDES
     Route: 048
  5. SIMVASTATIN. [Concomitant]
     Active Substance: SIMVASTATIN
     Indication: BLOOD CHOLESTEROL ABNORMAL
     Route: 048
  6. LISINOPRIL. [Suspect]
     Active Substance: LISINOPRIL
     Indication: BLOOD PRESSURE
     Route: 048
  7. SEROQUEL [Suspect]
     Active Substance: QUETIAPINE FUMARATE
     Indication: BIPOLAR DISORDER
     Dosage: 2
     Route: 048
  8. TRAZODONE [Suspect]
     Active Substance: TRAZODONE HYDROCHLORIDE
     Indication: SLEEP DISORDER
     Route: 048
     Dates: start: 201307
  9. DEPAKOTE [Concomitant]
     Active Substance: DIVALPROEX SODIUM
     Indication: EPILEPSY
     Route: 048
     Dates: start: 201307, end: 201308
  10. SEROQUEL [Suspect]
     Active Substance: QUETIAPINE FUMARATE
     Indication: BIPOLAR DISORDER
     Dosage: GENERIC
     Route: 048
     Dates: start: 2013, end: 2013
  11. HYDROCODONE [Concomitant]
     Active Substance: HYDROCODONE
     Indication: PAIN
     Route: 048
     Dates: start: 201309
  12. LORAZEPAM. [Concomitant]
     Active Substance: LORAZEPAM
     Indication: MANIA
     Dates: start: 201302
  13. CALCITROL [Concomitant]
     Active Substance: CALCITRIOL
     Indication: PSEUDOHYPOPARATHYROIDISM
     Dosage: DAILY
     Route: 048
  14. LAMICTAL [Concomitant]
     Active Substance: LAMOTRIGINE
     Indication: PRODUCT USED FOR UNKNOWN INDICATION
     Route: 048
  15. MERTAZAPINE [Concomitant]
     Active Substance: MIRTAZAPINE
     Indication: SLEEP DISORDER
     Route: 048
  16. XANAX [Concomitant]
     Active Substance: ALPRAZOLAM
     Indication: ANXIETY
     Route: 048
  17. LEVOTHYROXINE [Concomitant]
     Active Substance: LEVOTHYROXINE
     Indication: THYROID DISORDER
     Route: 048
  18. PRILOSEC [Suspect]
     Active Substance: OMEPRAZOLE MAGNESIUM
     Indication: DYSPEPSIA
     Dosage: DAILY
     Route: 048
     Dates: start: 2012
  19. REMERON [Concomitant]
     Active Substance: MIRTAZAPINE
     Indication: SLEEP DISORDER
     Route: 048
     Dates: start: 2014
  20. TRILIPEX [Concomitant]
     Indication: BLOOD CHOLESTEROL ABNORMAL
     Route: 048
     Dates: start: 2012
  21. SEROQUEL [Suspect]
     Active Substance: QUETIAPINE FUMARATE
     Indication: BIPOLAR DISORDER
     Dosage: GENERIC
     Route: 048
     Dates: start: 201212
  22. ROCALTROL [Concomitant]
     Active Substance: CALCITRIOL
     Indication: PSEUDOHYPOPARATHYROIDISM
     Route: 048
  23. TRILIPEX [Concomitant]
     Indication: BLOOD TRIGLYCERIDES ABNORMAL
     Route: 048
     Dates: start: 2012
  24. POTASSIUM CHLORIDE. [Concomitant]
     Active Substance: POTASSIUM CHLORIDE
     Indication: SUPPLEMENTATION THERAPY
     Route: 048
  25. SEROQUEL [Suspect]
     Active Substance: QUETIAPINE FUMARATE
     Indication: BIPOLAR DISORDER
     Route: 048
  26. MULTIVITAMIN [Concomitant]
     Active Substance: VITAMINS
     Indication: VITAMIN SUPPLEMENTATION
     Route: 048
  27. CALCIUM [Concomitant]
     Active Substance: CALCIUM
     Indication: SUPPLEMENTATION THERAPY
     Route: 048

REACTIONS (28)
  - Product substitution issue [None]
  - Bipolar I disorder [Unknown]
  - Dyspepsia [Unknown]
  - Feeling abnormal [Unknown]
  - Self-medication [None]
  - Nasopharyngitis [Unknown]
  - Off label use [Not Recovered/Not Resolved]
  - Myalgia [None]
  - Pulmonary mass [Unknown]
  - Violence-related symptom [Unknown]
  - Alcohol use [None]
  - Muscle spasms [Recovered/Resolved]
  - Feeling guilty [Unknown]
  - Blood pressure increased [Unknown]
  - Malaise [Recovered/Resolved]
  - Myalgia [Unknown]
  - Crying [Unknown]
  - Intentional product misuse [Unknown]
  - Drug dose omission [Not Recovered/Not Resolved]
  - Economic problem [None]
  - Fear [Recovered/Resolved]
  - Dizziness [Unknown]
  - Drug ineffective [Unknown]
  - Fall [Unknown]
  - Pain [Recovered/Resolved]
  - Disturbance in social behaviour [Unknown]
  - Disorientation [Recovered/Resolved]
  - Malaise [None]

NARRATIVE: CASE EVENT DATE: 2005
